FAERS Safety Report 11934600 (Version 1)
Quarter: 2016Q1

REPORT INFORMATION
  Report Type: Spontaneous
  Country: US (occurrence: None)
  Receive Date: 20160120
  Receipt Date: 20160120
  Transmission Date: 20160526
  Serious: Yes (Life-Threatening, Hospitalization, Disabling, Other)
  Sender: FDA-Public Use
  Company Number: None

PATIENT
  Age: 55 Day
  Sex: Female
  Weight: 48.08 kg

DRUGS (15)
  1. VITAMIN D [Concomitant]
     Active Substance: CHOLECALCIFEROL
  2. LIP MOSTERIZIUER [Concomitant]
  3. CALCIUM [Concomitant]
     Active Substance: CALCIUM
  4. OXYCODONE [Concomitant]
     Active Substance: OXYCODONE
  5. VIOXX [Concomitant]
     Active Substance: ROFECOXIB
  6. RESTASIS [Concomitant]
     Active Substance: CYCLOSPORINE
  7. PROTONIX [Concomitant]
     Active Substance: PANTOPRAZOLE SODIUM
  8. BOTOX [Suspect]
     Active Substance: ONABOTULINUMTOXINA
     Indication: MIGRAINE
     Dosage: INJECTIONS 21 UNITS EVERY 3-4 MONTHS INTO THE MUSCLE
     Dates: start: 20151002
  9. LISINAPROL [Concomitant]
  10. ASPRIN [Concomitant]
     Active Substance: ASPIRIN
  11. MOUTH RINSE [Concomitant]
     Active Substance: EUCALYPTOL\MENTHOL\METHYL SALICYLATE\THYMOL
  12. EYE DROPS [Concomitant]
     Active Substance: TETRAHYDROZOLINE HYDROCHLORIDE
  13. FISH OIL [Concomitant]
     Active Substance: FISH OIL
  14. CALCIUM [Concomitant]
     Active Substance: CALCIUM
  15. BIOTIN MOUTH [Concomitant]

REACTIONS (16)
  - Hyperhidrosis [None]
  - Diarrhoea [None]
  - Oral candidiasis [None]
  - Muscle spasms [None]
  - Fungal infection [None]
  - Sjogren^s syndrome [None]
  - Palpitations [None]
  - Migraine [None]
  - Salivary gland enlargement [None]
  - Feeling cold [None]
  - Eye swelling [None]
  - Dyspnoea [None]
  - Tremor [None]
  - Blood pressure inadequately controlled [None]
  - Bacterial infection [None]
  - Feeling abnormal [None]

NARRATIVE: CASE EVENT DATE: 20151002
